FAERS Safety Report 16975749 (Version 1)
Quarter: 2019Q4

REPORT INFORMATION
  Report Type: Spontaneous
  Country: US (occurrence: US)
  Receive Date: 20190913
  Receipt Date: 20190913
  Transmission Date: 20200122
  Serious: No
  Sender: FDA-Public Use
  Company Number: None

PATIENT
  Age: 69 Year
  Sex: Male

DRUGS (2)
  1. ZYTIGA [Suspect]
     Active Substance: ABIRATERONE ACETATE
     Route: 048
     Dates: start: 20180912
  2. MORPHINE [Suspect]
     Active Substance: MORPHINE

REACTIONS (2)
  - Syncope [None]
  - Feeling hot [None]

NARRATIVE: CASE EVENT DATE: 20190901
